FAERS Safety Report 17369852 (Version 1)
Quarter: 2020Q1

REPORT INFORMATION
  Report Type: Spontaneous
  Country: US (occurrence: US)
  Receive Date: 20200121
  Receipt Date: 20200121
  Transmission Date: 20200409
  Serious: No
  Sender: FDA-Public Use
  Company Number: None

PATIENT
  Age: 77 Year
  Sex: Female

DRUGS (1)
  1. COSENTYX [Suspect]
     Active Substance: SECUKINUMAB
     Indication: GUTTATE PSORIASIS
     Dosage: INJECT 300MG (2 PEN)S SUBCUTANEOUSLY ONCE A WEEK FOR 5  WEEKS AS DIRECTED
     Route: 058
     Dates: start: 201807

REACTIONS (2)
  - Night sweats [None]
  - Therapy cessation [None]
